FAERS Safety Report 13988525 (Version 2)
Quarter: 2017Q4

REPORT INFORMATION
  Report Type: Spontaneous
  Country: GB (occurrence: GB)
  Receive Date: 20170919
  Receipt Date: 20171211
  Transmission Date: 20180321
  Serious: Yes (Hospitalization)
  Sender: FDA-Public Use
  Company Number: GB-PFIZER INC-2017396800

PATIENT
  Age: 59 Year
  Sex: Male
  Weight: 105 kg

DRUGS (19)
  1. SODIUM CHLORIDE. [Suspect]
     Active Substance: SODIUM CHLORIDE
     Dosage: 55.94 ML, UNK
  2. CALCIUM GLUCONATE. [Suspect]
     Active Substance: CALCIUM GLUCONATE
     Dosage: 88.81 ML, UNK
  3. LOPERAMIDE [Concomitant]
     Active Substance: LOPERAMIDE
     Dosage: 40 MG, 1X/DAY
     Route: 048
  4. LIPIDEM [Suspect]
     Active Substance: MEDIUM-CHAIN TRIGLYCERIDES\OMEGA-3 FATTY ACIDS\SOYBEAN OIL
  5. MAGNESIUM SULPHATE /01097001/ [Suspect]
     Active Substance: MAGNESIUM SULFATE
  6. CODEINE [Concomitant]
     Active Substance: CODEINE
     Dosage: 60 MG, 1X/DAY
     Route: 048
  7. RANITIDINE. [Concomitant]
     Active Substance: RANITIDINE
     Dosage: 300 MG, DAILY
     Route: 048
  8. SOLIVITO N /01801401/ [Suspect]
     Active Substance: VITAMINS
     Dosage: 10 ML, UNK
  9. ADDITRACE [Suspect]
     Active Substance: MINERALS
     Dosage: 10 ML, UNK
  10. VITLIPID N [Suspect]
     Active Substance: ERGOCALCIFEROL\PHYTONADIONE\RETINOL\TOCOPHEROL
     Dosage: 10 ML, UNK
  11. SODIUM GLYCEROPHOSPHATE [Suspect]
     Active Substance: SODIUM GLYCEROPHOSPHATE
     Dosage: 16.95 ML, UNK
  12. POTASSIUM CHLORIDE. [Suspect]
     Active Substance: POTASSIUM CHLORIDE
     Dosage: 60 MG, UNK
  13. ASCORBIC ACID. [Suspect]
     Active Substance: ASCORBIC ACID
     Dosage: 1 ML, UNK
  14. AMINOPLASMAL /02133801/ [Suspect]
     Active Substance: AMINO ACIDS
     Dosage: 666.67 ML, UNK
  15. GLUCOSE [Suspect]
     Active Substance: DEXTROSE
  16. COLECALCIFEROL [Concomitant]
     Active Substance: CHOLECALCIFEROL
     Dosage: 800 IU, 1X/DAY IN THE MORNING
     Route: 048
  17. ATORVASTATIN [Concomitant]
     Active Substance: ATORVASTATIN
     Dosage: 40MG 1 DAILY AT NIGHT
     Route: 048
  18. BISOPROLOL [Concomitant]
     Active Substance: BISOPROLOL
     Dosage: 1.25 MG, 1X/DAY
     Route: 048
  19. ASPIRIN. [Concomitant]
     Active Substance: ASPIRIN
     Dosage: 75 MG, 1X/DAY
     Route: 048

REACTIONS (3)
  - Candida infection [Recovering/Resolving]
  - Pyrexia [Recovered/Resolved]
  - Chills [Recovered/Resolved]

NARRATIVE: CASE EVENT DATE: 201708
